FAERS Safety Report 7670285-7 (Version None)
Quarter: 2011Q3

REPORT INFORMATION
  Report Type: 
  Country: None (occurrence: None)
  Receive Date: 20110809
  Receipt Date: 20110802
  Transmission Date: 20111222
  Serious: Yes (Hospitalization, Other)
  Sender: FDA-Public Use
  Company Number: US-BIOGENIDEC-2011BI019022

PATIENT
  Age: 35 Year
  Sex: Female

DRUGS (1)
  1. TYSABRI [Suspect]
     Indication: MULTIPLE SCLEROSIS
     Route: 042
     Dates: start: 20070216, end: 20110302

REACTIONS (5)
  - MEMORY IMPAIRMENT [None]
  - REPETITIVE SPEECH [None]
  - MULTIPLE SCLEROSIS [None]
  - DRUG INTERACTION [None]
  - COGNITIVE DISORDER [None]
